FAERS Safety Report 8906038 (Version 2)
Quarter: 2012Q4

REPORT INFORMATION
  Report Type: 
  Country: IT (occurrence: IT)
  Receive Date: 20121109
  Receipt Date: 20121126
  Transmission Date: 20130627
  Serious: Yes (Hospitalization)
  Sender: FDA-Public Use
  Company Number: IT-GLAXOSMITHKLINE-B0843253A

PATIENT
  Age: 1 Year
  Sex: Male

DRUGS (3)
  1. AUGMENTIN [Suspect]
     Indication: PRODUCTIVE COUGH
     Dosage: 10.5ML per day
     Route: 048
     Dates: start: 20120523, end: 20120527
  2. VENTOLIN [Suspect]
     Indication: PRODUCTIVE COUGH
     Route: 055
     Dates: start: 20120523, end: 20120527
  3. PARACETAMOL [Suspect]
     Indication: PRODUCTIVE COUGH
     Dosage: 250MG per day
     Route: 065
     Dates: start: 20120523, end: 20120527

REACTIONS (2)
  - Acute haemorrhagic oedema of infancy [Recovered/Resolved]
  - Purpura [Recovered/Resolved]
